FAERS Safety Report 6153140-3 (Version None)
Quarter: 2009Q2

REPORT INFORMATION
  Report Type: 
  Country: None (occurrence: None)
  Receive Date: 20090413
  Receipt Date: 20090406
  Transmission Date: 20091009
  Serious: Yes (Hospitalization)
  Sender: FDA-Public Use
  Company Number: MY-RB-013677-09

PATIENT
  Age: 30 Year
  Sex: Male

DRUGS (2)
  1. SUBUTEX [Suspect]
     Indication: DRUG USE FOR UNKNOWN INDICATION
     Dosage: 8 MG TABLETS CUT INTO FOUR PORTIONS, FREQUENCY UNKNOWN
     Route: 042
  2. DORMICUM [Suspect]
     Indication: DRUG USE FOR UNKNOWN INDICATION
     Dosage: UNKNOWN DOSAGE AND FORM
     Route: 042

REACTIONS (11)
  - DISSEMINATED INTRAVASCULAR COAGULATION [None]
  - EJECTION FRACTION DECREASED [None]
  - ENDOCARDITIS [None]
  - GLOMERULONEPHRITIS ACUTE [None]
  - HEPATITIS C [None]
  - INTENTIONAL DRUG MISUSE [None]
  - LUNG ABSCESS [None]
  - PULMONARY EMBOLISM [None]
  - RENAL ABSCESS [None]
  - SEPSIS [None]
  - TRICUSPID VALVE INCOMPETENCE [None]
